FAERS Safety Report 6666052-3 (Version None)
Quarter: 2010Q2

REPORT INFORMATION
  Report Type: 
  Country: None (occurrence: None)
  Receive Date: 20100402
  Receipt Date: 20100324
  Transmission Date: 20101027
  Serious: Yes (Other)
  Sender: FDA-Public Use
  Company Number: B0639762A

PATIENT
  Age: 61 Year
  Sex: Female

DRUGS (5)
  1. AVANDIA [Suspect]
     Dosage: 4MG PER DAY
     Route: 065
  2. FUROSEMIDE [Concomitant]
     Route: 065
  3. PERINDOPRIL TERT-BUTYLAMINE [Concomitant]
     Route: 065
  4. REPAGLINIDE [Concomitant]
     Route: 065
  5. METFORMIN (GLUCOPHAGE) [Concomitant]
     Route: 065

REACTIONS (7)
  - DIABETIC EYE DISEASE [None]
  - DIABETIC RETINAL OEDEMA [None]
  - DYSPNOEA [None]
  - METAMORPHOPSIA [None]
  - OCULAR HYPERAEMIA [None]
  - PHOTOCOAGULATION [None]
  - VISUAL ACUITY REDUCED [None]
